FAERS Safety Report 14633457 (Version 17)
Quarter: 2021Q2

REPORT INFORMATION
  Report Type: Report from Study
  Country: None (occurrence: JP)
  Receive Date: 20180313
  Receipt Date: 20210510
  Transmission Date: 20210716
  Serious: Yes (Hospitalization)
  Sender: FDA-Public Use
  Company Number: JP-ABBVIE-17K-087-2019053-00

PATIENT
  Age: 58 Year
  Sex: Female
  Weight: 45 kg

DRUGS (51)
  1. SYMMETREL [Suspect]
     Active Substance: AMANTADINE HYDROCHLORIDE
     Indication: PARKINSON^S DISEASE
     Route: 048
     Dates: start: 20170418, end: 20170501
  2. DUODOPA [Suspect]
     Active Substance: CARBIDOPA\LEVODOPA
     Dosage: MD: 13 ML, CD: 3.7 ML/HR X 15 HR, ED: 0.9 ML/UNIT X 1, LEVODOPA EQUIVALENT DOSE: 2400 MG
     Route: 050
     Dates: start: 20170125, end: 20170208
  3. DUODOPA [Suspect]
     Active Substance: CARBIDOPA\LEVODOPA
     Dosage: MD: 10 ML, CD: 3.8 ML/HR X 16 HR, ED: 1 ML/UNIT X 2
     Route: 050
     Dates: start: 20170628, end: 20170712
  4. DUODOPA [Suspect]
     Active Substance: CARBIDOPA\LEVODOPA
     Dosage: MD: 10 ML, CD: 4.8 ML/HR X 16 HR, ED: 2 ML/UNIT X 6
     Route: 050
     Dates: start: 20170712, end: 20170725
  5. DUODOPA [Suspect]
     Active Substance: CARBIDOPA\LEVODOPA
     Dosage: MD: 6 ML, CD: 4.6 ML/HR X 16 HR, ED: 2 ML/UNIT X 3
     Route: 050
  6. DUODOPA [Suspect]
     Active Substance: CARBIDOPA\LEVODOPA
     Dosage: MD: 6 ML?CD: 5.0 ML/HR X 15 HRS?ED: 2 ML/UNIT X 1 TIME
     Route: 050
     Dates: start: 20180519, end: 20180629
  7. QUETIAPINE FUMARATE. [Suspect]
     Active Substance: QUETIAPINE FUMARATE
     Indication: PRODUCT USED FOR UNKNOWN INDICATION
     Route: 048
     Dates: start: 20180717
  8. DUODOPA [Suspect]
     Active Substance: CARBIDOPA\LEVODOPA
     Dosage: MD: 11 ML, CD: 3.4 ML/HR X 15 HR, ED: 1 ML/UNIT X 2
     Route: 050
     Dates: start: 20170307, end: 20170321
  9. DUODOPA [Suspect]
     Active Substance: CARBIDOPA\LEVODOPA
     Route: 050
     Dates: start: 20180406, end: 20180509
  10. CLONAZEPAM. [Concomitant]
     Active Substance: CLONAZEPAM
     Indication: PRODUCT USED FOR UNKNOWN INDICATION
     Route: 048
  11. DOMPERIDONE [Concomitant]
     Active Substance: DOMPERIDONE
     Indication: PRODUCT USED FOR UNKNOWN INDICATION
     Route: 048
     Dates: start: 20170125
  12. TRAZODONE HYDROCHLORIDE. [Concomitant]
     Active Substance: TRAZODONE HYDROCHLORIDE
     Indication: PRODUCT USED FOR UNKNOWN INDICATION
     Route: 048
     Dates: start: 20180601, end: 20180716
  13. DUODOPA [Suspect]
     Active Substance: CARBIDOPA\LEVODOPA
     Indication: PARKINSON^S DISEASE
     Dosage: MD: 8 ML, CD: 3.1 ML/HR X 15 HR
     Route: 050
     Dates: start: 20161202, end: 20161208
  14. DUODOPA [Suspect]
     Active Substance: CARBIDOPA\LEVODOPA
     Dosage: MD: 11 ML, CD: 3.0 ML/HR X 15 HR, ED: 0.9 ML/UNIT X 3
     Route: 050
     Dates: start: 20170404, end: 20170628
  15. DUODOPA [Suspect]
     Active Substance: CARBIDOPA\LEVODOPA
     Dosage: MD: 6 ML, CD: 4.6 ML/HR X 16 HR, ED: 2 ML/UNIT X 2
     Route: 050
     Dates: start: 20171017
  16. ISTRADEFYLLINE [Concomitant]
     Active Substance: ISTRADEFYLLINE
     Indication: PARKINSON^S DISEASE
     Route: 048
     Dates: start: 20180417, end: 20180424
  17. DUODOPA [Suspect]
     Active Substance: CARBIDOPA\LEVODOPA
     Dosage: MD: 11 ML, CD: 3.8 ML/HR X 15 HR, ED: 0.9 ML/UNIT X 7
     Route: 050
     Dates: start: 20161217, end: 20161226
  18. DUODOPA [Suspect]
     Active Substance: CARBIDOPA\LEVODOPA
     Dosage: MD: 11 ML, CD: 3.7 ML/HR X 15 HR, ED: 0.9ML/UNIT X 2
     Route: 050
     Dates: start: 20170111, end: 20170124
  19. NEUPRO [Suspect]
     Active Substance: ROTIGOTINE
     Route: 062
     Dates: start: 20171014
  20. TRERIEF [Suspect]
     Active Substance: ZONISAMIDE
     Indication: PARKINSON^S DISEASE
     Route: 048
     Dates: start: 20170130
  21. MADOPAR [Concomitant]
     Active Substance: BENSERAZIDE HYDROCHLORIDE\LEVODOPA
     Indication: PARKINSON^S DISEASE
     Dosage: THE AMOUNT OF LEVODOPA CONVERTED TO 16?HOUR DOSE DURING DAYTIME WAS 900 MG.
     Route: 048
     Dates: start: 20170419, end: 20170516
  22. DULOXETINE HYDROCHLORIDE. [Concomitant]
     Active Substance: DULOXETINE HYDROCHLORIDE
     Indication: PRODUCT USED FOR UNKNOWN INDICATION
     Route: 048
  23. RAMELTEON [Concomitant]
     Active Substance: RAMELTEON
     Indication: PRODUCT USED FOR UNKNOWN INDICATION
     Route: 048
  24. ETIZOLAM [Concomitant]
     Active Substance: ETIZOLAM
     Route: 048
     Dates: start: 20180411, end: 20180614
  25. BROMOVALERYLUREA [Concomitant]
     Active Substance: BROMISOVAL
     Indication: PRODUCT USED FOR UNKNOWN INDICATION
     Route: 048
  26. MENESIT [Concomitant]
     Active Substance: CARBIDOPA\LEVODOPA
     Indication: PRODUCT USED FOR UNKNOWN INDICATION
     Route: 048
  27. ENTACAPONE. [Concomitant]
     Active Substance: ENTACAPONE
     Indication: PARKINSON^S DISEASE
     Route: 048
     Dates: start: 20170725
  28. DUODOPA [Suspect]
     Active Substance: CARBIDOPA\LEVODOPA
     Dosage: MD: 11 ML, CD: 3.7 ML/HR X 15 HR, ED: 1 ML/UNIT X 2
     Route: 050
     Dates: start: 20170208, end: 20170307
  29. DUODOPA [Suspect]
     Active Substance: CARBIDOPA\LEVODOPA
     Dosage: MD: 7 ML?CD: 5.0 ML/HR X 2 HRS?ED: 2 ML/UNIT X 1 TIME
     Route: 050
     Dates: start: 20180630
  30. NEUPRO [Suspect]
     Active Substance: ROTIGOTINE
     Route: 062
     Dates: start: 20170812, end: 20170919
  31. NEUPRO [Suspect]
     Active Substance: ROTIGOTINE
     Route: 062
     Dates: start: 20170920, end: 20171013
  32. LORAZEPAM. [Concomitant]
     Active Substance: LORAZEPAM
     Indication: PRODUCT USED FOR UNKNOWN INDICATION
     Route: 048
     Dates: end: 20180620
  33. ZOLPIDEM TARTRATE. [Concomitant]
     Active Substance: ZOLPIDEM TARTRATE
     Indication: PRODUCT USED FOR UNKNOWN INDICATION
     Route: 048
  34. POLAPREZINC [Concomitant]
     Active Substance: POLAPREZINC
     Indication: PRODUCT USED FOR UNKNOWN INDICATION
     Route: 048
  35. MECOBALAMIN [Concomitant]
     Active Substance: METHYLCOBALAMIN
     Indication: PROPHYLAXIS
     Route: 048
     Dates: start: 20170711
  36. DUODOPA [Suspect]
     Active Substance: CARBIDOPA\LEVODOPA
     Dosage: MD: 12 ML, CD: 4.3 ML/HR X 15 HR
     Route: 050
     Dates: start: 20161227, end: 20170110
  37. DUODOPA [Suspect]
     Active Substance: CARBIDOPA\LEVODOPA
     Route: 050
  38. MADOPAR [Concomitant]
     Active Substance: BENSERAZIDE HYDROCHLORIDE\LEVODOPA
     Dosage: THE AMOUNT OF LEVODOPA CONVERTED TO 16?HOUR DOSE DURING DAYTIME WAS 450 MG.
     Route: 048
     Dates: start: 20160517, end: 20170531
  39. ISTRADEFYLLINE [Concomitant]
     Active Substance: ISTRADEFYLLINE
     Route: 048
     Dates: start: 20180425
  40. DUODOPA [Suspect]
     Active Substance: CARBIDOPA\LEVODOPA
     Dosage: MD: 11 ML, CD: 3.3 ML/HR X 15 HR, ED: 0.8 ML/UNIT X 2
     Route: 050
     Dates: start: 20161209, end: 20161216
  41. DUODOPA [Suspect]
     Active Substance: CARBIDOPA\LEVODOPA
     Dosage: MD: 11 ML, CD: 3.2 ML/HR X 15 HR, ED: 0.9 ML/UNIT X 3
     Route: 050
     Dates: start: 20170321, end: 20170404
  42. DUODOPA [Suspect]
     Active Substance: CARBIDOPA\LEVODOPA
     Dosage: MD: 10 ML, CD: 5.1 ML/HR X 16 HR, ED: 2 ML/UNIT X 2
     Route: 050
     Dates: start: 20170725, end: 20171017
  43. DUODOPA [Suspect]
     Active Substance: CARBIDOPA\LEVODOPA
     Dosage: MD: 6 ML?CD: 4.8 ML/HR X 15 HRS?ED: 2 ML/UNIT X 1 TIME
     Route: 050
     Dates: start: 20180509, end: 20180518
  44. NEUPRO [Suspect]
     Active Substance: ROTIGOTINE
     Indication: PARKINSON^S DISEASE
     Route: 062
     Dates: start: 20170208, end: 20170808
  45. SYMMETREL [Suspect]
     Active Substance: AMANTADINE HYDROCHLORIDE
     Route: 048
     Dates: start: 20170502
  46. MADOPAR [Concomitant]
     Active Substance: BENSERAZIDE HYDROCHLORIDE\LEVODOPA
     Route: 048
     Dates: start: 20170601, end: 20170811
  47. MADOPAR [Concomitant]
     Active Substance: BENSERAZIDE HYDROCHLORIDE\LEVODOPA
     Route: 048
     Dates: start: 20170812, end: 20180518
  48. MADOPAR [Concomitant]
     Active Substance: BENSERAZIDE HYDROCHLORIDE\LEVODOPA
     Route: 048
     Dates: start: 20180519, end: 20180629
  49. MADOPAR [Concomitant]
     Active Substance: BENSERAZIDE HYDROCHLORIDE\LEVODOPA
     Route: 048
     Dates: start: 20180630
  50. ETIZOLAM [Concomitant]
     Active Substance: ETIZOLAM
     Indication: PRODUCT USED FOR UNKNOWN INDICATION
     Route: 048
  51. FAMOTIDINE. [Concomitant]
     Active Substance: FAMOTIDINE
     Indication: PRODUCT USED FOR UNKNOWN INDICATION
     Route: 048

REACTIONS (21)
  - Blood alkaline phosphatase increased [Recovered/Resolved]
  - Delusion [Recovered/Resolved]
  - Stoma site hypergranulation [Recovering/Resolving]
  - Stoma site haemorrhage [Recovered/Resolved]
  - Dyskinesia [Not Recovered/Not Resolved]
  - Suicide attempt [Recovered/Resolved]
  - Motor dysfunction [Unknown]
  - Device occlusion [Recovered/Resolved]
  - Dyskinesia [Recovered/Resolved]
  - Stoma site pain [Recovering/Resolving]
  - Hallucination, visual [Recovered/Resolved]
  - Constipation [Not Recovered/Not Resolved]
  - Dyskinesia [Unknown]
  - Device issue [Not Recovered/Not Resolved]
  - Weight decreased [Recovering/Resolving]
  - Vomiting [Recovered/Resolved]
  - Dysphagia [Recovered/Resolved]
  - Dopamine dysregulation syndrome [Recovered/Resolved]
  - Stoma site pain [Recovering/Resolving]
  - Impulse-control disorder [Recovering/Resolving]
  - Dyskinesia [Not Recovered/Not Resolved]

NARRATIVE: CASE EVENT DATE: 20170111
